FAERS Safety Report 10706406 (Version 1)
Quarter: 2015Q1

REPORT INFORMATION
  Report Type: Spontaneous
  Country: US (occurrence: None)
  Receive Date: 20150109
  Receipt Date: 20150109
  Transmission Date: 20150721
  Serious: No
  Sender: FDA-Public Use
  Company Number: None

PATIENT
  Age: 57 Year
  Sex: Female
  Weight: 74.84 kg

DRUGS (1)
  1. LISINOPRIL-HCTZ 20-12.5 MG TAB LUPIN PHARM [Suspect]
     Active Substance: HYDROCHLOROTHIAZIDE\LISINOPRIL
     Indication: HYPERTENSION
     Dosage: 1 PILL
     Dates: start: 20140724, end: 20150108

REACTIONS (7)
  - Upper-airway cough syndrome [None]
  - Throat irritation [None]
  - Middle insomnia [None]
  - Initial insomnia [None]
  - Increased viscosity of nasal secretion [None]
  - Productive cough [None]
  - Cough [None]
